FAERS Safety Report 10527435 (Version 1)
Quarter: 2014Q4

REPORT INFORMATION
  Report Type: Spontaneous
  Country: FR (occurrence: FR)
  Receive Date: 20141020
  Receipt Date: 20141020
  Transmission Date: 20150528
  Serious: Yes (Hospitalization)
  Sender: FDA-Public Use
  Company Number: FR-MALLINCKRODT-T201403736

PATIENT
  Age: 22 Year
  Sex: Male

DRUGS (4)
  1. SOLUPRED [Suspect]
     Active Substance: PREDNISOLONE
     Indication: TOOTH ABSCESS
     Dosage: 120 MG 1 DAY
     Route: 048
     Dates: start: 20140719
  2. OFIRMEV [Suspect]
     Active Substance: ACETAMINOPHEN
     Indication: TOOTH ABSCESS
     Dosage: 1 DOSAGE FORM 1 DAY
     Route: 042
     Dates: start: 20140719
  3. AUGMENTIN [Concomitant]
     Active Substance: AMOXICILLIN\CLAVULANATE POTASSIUM
     Dosage: UNK
  4. SURGAM [Suspect]
     Active Substance: TIAPROFENIC ACID
     Indication: TOOTH ABSCESS
     Dosage: 200 MG 4 DAY
     Route: 048
     Dates: start: 20140716, end: 20140719

REACTIONS (1)
  - Cellulitis [Recovered/Resolved]

NARRATIVE: CASE EVENT DATE: 20140720
